FAERS Safety Report 25261601 (Version 1)
Quarter: 2025Q2

REPORT INFORMATION
  Report Type: Spontaneous
  Country: US (occurrence: US)
  Receive Date: 20250502
  Receipt Date: 20250502
  Transmission Date: 20250716
  Serious: Yes (Other)
  Sender: AMGEN
  Company Number: US-AMGEN-USASP2025082730

PATIENT

DRUGS (1)
  1. ENBREL [Suspect]
     Active Substance: ETANERCEPT
     Indication: Product used for unknown indication
     Route: 065

REACTIONS (10)
  - Acute myeloid leukaemia [Recovered/Resolved]
  - Rheumatoid arthritis [Not Recovered/Not Resolved]
  - Spinal operation [Unknown]
  - Post procedural infection [Unknown]
  - Carpal tunnel syndrome [Unknown]
  - Tenoplasty [Unknown]
  - Trigger finger [Unknown]
  - Cholecystectomy [Unknown]
  - Lumbar spinal stenosis [Unknown]
  - Rash [Unknown]
